FAERS Safety Report 23291257 (Version 1)
Quarter: 2023Q4

REPORT INFORMATION
  Report Type: Spontaneous
  Country: EG (occurrence: EG)
  Receive Date: 20231213
  Receipt Date: 20231213
  Transmission Date: 20240110
  Serious: Yes (Other)
  Sender: FDA-Public Use
  Company Number: 2023BAX037655

PATIENT
  Age: 58 Year
  Sex: Male

DRUGS (5)
  1. DOXORUBICIN [Suspect]
     Active Substance: DOXORUBICIN
     Indication: Cutaneous T-cell lymphoma stage IV
     Dosage: CHOP/ETOPOSIDE, 50 MG/M2 BY INTRAVENOUS INFUSION ON DAY 1, TO BE REPEATED/3 WEEKS
     Route: 042
  2. CYCLOPHOSPHAMIDE [Suspect]
     Active Substance: CYCLOPHOSPHAMIDE
     Indication: Cutaneous T-cell lymphoma stage IV
     Dosage: CHOP/ETOPOSIDE, 750MG/M2 BY INTRAVENOUS INFUSION ON DAY 1, TO BE REPEATED/3 WEEKS
     Route: 042
  3. ETOPOSIDE [Suspect]
     Active Substance: ETOPOSIDE
     Indication: Cutaneous T-cell lymphoma stage IV
     Dosage: CHOP/ETOPOSIDE, 100 MG/M2 BY INTRAVENOUSLY DAYS 1-3 TO BE REPEATED/3 WEEKS
     Route: 042
  4. VINCRISTINE [Suspect]
     Active Substance: VINCRISTINE
     Indication: Cutaneous T-cell lymphoma stage IV
     Dosage: CHOP/ETOPOSIDE, 1.4 MG/M2 BY INTRAVENOUS INFUSION ON DAY 1, TO BE REPEATED/3 WEEKS
     Route: 042
  5. GRANULOCYTE COLONY-STIMULATING FACTOR NOS [Suspect]
     Active Substance: GRANULOCYTE COLONY-STIMULATING FACTOR NOS
     Indication: Cutaneous T-cell lymphoma stage IV
     Route: 065

REACTIONS (1)
  - Myelosuppression [Unknown]
